FAERS Safety Report 8605189-6 (Version None)
Quarter: 2012Q3

REPORT INFORMATION
  Report Type: 
  Country: None (occurrence: None)
  Receive Date: 20120820
  Receipt Date: 20120810
  Transmission Date: 20120928
  Serious: Yes (Other)
  Sender: FDA-Public Use
  Company Number: US-US-EMD SERONO, INC.-7064277

PATIENT
  Sex: Female

DRUGS (4)
  1. CITALOPRAM HYDROBROMIDE [Concomitant]
     Indication: ANXIETY
  2. REBIF [Suspect]
     Route: 058
     Dates: start: 20110501
  3. IBUPROFEN [Concomitant]
     Indication: INFLUENZA LIKE ILLNESS
  4. REBIF [Suspect]
     Indication: MULTIPLE SCLEROSIS
     Route: 058
     Dates: start: 20050607, end: 20110401

REACTIONS (3)
  - BRONCHITIS [None]
  - PNEUMONIA [None]
  - GASTROENTERITIS VIRAL [None]
